FAERS Safety Report 7037711-8 (Version None)
Quarter: 2010Q4

REPORT INFORMATION
  Report Type: 
  Country: None (occurrence: None)
  Receive Date: 20101011
  Receipt Date: 20101001
  Transmission Date: 20110411
  Serious: Yes (Other)
  Sender: FDA-Public Use
  Company Number: US-MERCK-1010USA00123

PATIENT
  Sex: Female

DRUGS (2)
  1. JANUMET [Suspect]
     Indication: DIABETES MELLITUS
     Route: 048
     Dates: start: 20080601, end: 20100101
  2. METFORMIN [Concomitant]
     Route: 065

REACTIONS (2)
  - FUNGAL SKIN INFECTION [None]
  - HYPERKERATOSIS [None]
